FAERS Safety Report 7155075-6 (Version None)
Quarter: 2010Q4

REPORT INFORMATION
  Report Type: 
  Country: None (occurrence: None)
  Receive Date: 20101214
  Receipt Date: 20100120
  Transmission Date: 20110411
  Serious: No
  Sender: FDA-Public Use
  Company Number: US-AMGEN-KDL339058

PATIENT

DRUGS (8)
  1. ENBREL [Suspect]
     Indication: PSORIATIC ARTHROPATHY
     Dosage: 50 MG, QWK
     Route: 058
     Dates: start: 20020301
  2. ENBREL [Suspect]
     Indication: PSORIASIS
  3. BUPROPION [Concomitant]
  4. FLUTICASONE/SALMETEROL [Concomitant]
  5. OMEPRAZOLE [Concomitant]
  6. HYDROCHLOROTHIAZIDE [Concomitant]
  7. GLIPIZIDE [Concomitant]
  8. ERGOCALCIFEROL [Concomitant]

REACTIONS (10)
  - CONTUSION [None]
  - DRY SKIN [None]
  - FALL [None]
  - INFLAMMATION [None]
  - LIMB INJURY [None]
  - OPEN WOUND [None]
  - PSORIASIS [None]
  - SKIN DISORDER [None]
  - SKIN FRAGILITY [None]
  - ULCER [None]
